FAERS Safety Report 18051919 (Version 2)
Quarter: 2020Q3

REPORT INFORMATION
  Report Type: Spontaneous
  Country: US (occurrence: US)
  Receive Date: 20200721
  Receipt Date: 20200804
  Transmission Date: 20201103
  Serious: Yes (Other)
  Sender: FDA-Public Use
  Company Number: US-CHIESI USA, INC.-US-2020CHI000518

PATIENT

DRUGS (3)
  1. KENGREAL [Suspect]
     Active Substance: CANGRELOR
     Indication: BRAIN STENT INSERTION
     Dosage: 15 ?G/KG
     Route: 040
  2. KENGREAL [Suspect]
     Active Substance: CANGRELOR
     Indication: ANTIPLATELET THERAPY
     Dosage: 2 UNK
     Route: 042
  3. KENGREAL [Suspect]
     Active Substance: CANGRELOR
     Indication: OFF LABEL USE
     Dosage: 0.75 UNK
     Route: 042

REACTIONS (6)
  - Inappropriate schedule of product administration [Unknown]
  - Therapy non-responder [Not Recovered/Not Resolved]
  - Intentional product use issue [Recovered/Resolved]
  - Vascular stent thrombosis [Unknown]
  - Off label use [Recovered/Resolved]
  - Product complaint [Recovered/Resolved]
